FAERS Safety Report 4869017-7 (Version None)
Quarter: 2005Q4

REPORT INFORMATION
  Report Type: 
  Country: None (occurrence: None)
  Receive Date: 20051223
  Receipt Date: 20051207
  Transmission Date: 20060501
  Serious: Yes (Hospitalization, Other)
  Sender: FDA-Public Use
  Company Number: JP200511003208

PATIENT
  Age: 73 Year
  Sex: Female

DRUGS (5)
  1. EVISTA [Suspect]
     Indication: OSTEOPOROSIS
     Dosage: 60 MG, DAILY (1/D), ORAL
     Route: 048
     Dates: start: 20051119, end: 20051119
  2. GOSHAJINKIGAN (HERBAL EXTRACTS NOS) [Concomitant]
  3. DISOPAIN (MOFEZOLAC) TABLET [Concomitant]
  4. RINLAXER (CHLORPHENESIN CARBAMATE) TABLET [Concomitant]
  5. RIZE (CLOTIAZEPAM) TABLET [Concomitant]

REACTIONS (2)
  - ANAPHYLACTIC SHOCK [None]
  - INTESTINAL ISCHAEMIA [None]
